FAERS Safety Report 15008711 (Version 3)
Quarter: 2018Q3

REPORT INFORMATION
  Report Type: Spontaneous
  Country: US (occurrence: US)
  Receive Date: 20180613
  Receipt Date: 20180925
  Transmission Date: 20181010
  Serious: No
  Sender: FDA-Public Use
  Company Number: US-BIOGEN-2018BI00529201

PATIENT
  Sex: Female

DRUGS (5)
  1. TECFIDERA [Suspect]
     Active Substance: DIMETHYL FUMARATE
     Dosage: MAINTENANCE DOSE
     Route: 048
     Dates: start: 201704
  2. TECFIDERA [Suspect]
     Active Substance: DIMETHYL FUMARATE
     Indication: MULTIPLE SCLEROSIS
     Dosage: STARTING DOSE
     Route: 048
  3. TECFIDERA [Suspect]
     Active Substance: DIMETHYL FUMARATE
     Dosage: STARTING DOSE
     Route: 048
     Dates: start: 201704
  4. TECFIDERA [Suspect]
     Active Substance: DIMETHYL FUMARATE
     Dosage: MAINTENANCE DOSE , TAKE 1 CAPSULE BY MOUTH TWICE A DAY
     Route: 048
  5. TECFIDERA [Suspect]
     Active Substance: DIMETHYL FUMARATE
     Dosage: MAINTENANCE DOSE
     Route: 048

REACTIONS (10)
  - Depression [Not Recovered/Not Resolved]
  - Diarrhoea [Recovered/Resolved]
  - Headache [Unknown]
  - Abdominal pain upper [Unknown]
  - Agitation [Not Recovered/Not Resolved]
  - Flushing [Unknown]
  - Anxiety [Not Recovered/Not Resolved]
  - Muscle spasms [Unknown]
  - Hot flush [Unknown]
  - Insomnia [Not Recovered/Not Resolved]
